FAERS Safety Report 25668020 (Version 3)
Quarter: 2025Q3

REPORT INFORMATION
  Report Type: Report from Study
  Country: US (occurrence: US)
  Receive Date: 20250812
  Receipt Date: 20250909
  Transmission Date: 20251021
  Serious: No
  Sender: BIOVITRUM
  Company Number: US-BIOVITRUM-2025-US-010794

PATIENT
  Age: 68 Year
  Sex: Male

DRUGS (1)
  1. KINERET [Suspect]
     Active Substance: ANAKINRA
     Indication: Rheumatoid arthritis
     Route: 058
     Dates: start: 20250227

REACTIONS (1)
  - Drug ineffective [Unknown]
